FAERS Safety Report 5214405-2 (Version None)
Quarter: 2007Q1

REPORT INFORMATION
  Report Type: 
  Country: None (occurrence: None)
  Receive Date: 20070122
  Receipt Date: 20070111
  Transmission Date: 20070707
  Serious: Yes (Other)
  Sender: FDA-Public Use
  Company Number: AU-GLAXOSMITHKLINE-B0454801A

PATIENT
  Age: 35 Year
  Sex: Male

DRUGS (1)
  1. NICABATE CQ 21MG [Suspect]
     Indication: DRUG WITHDRAWAL MAINTENANCE THERAPY
     Route: 062
     Dates: start: 20070108

REACTIONS (3)
  - ABNORMAL DREAMS [None]
  - PARALYSIS [None]
  - SLEEP DISORDER [None]
